FAERS Safety Report 5525629-9 (Version None)
Quarter: 2007Q4

REPORT INFORMATION
  Report Type: 
  Country: None (occurrence: None)
  Receive Date: 20071126
  Receipt Date: 20071121
  Transmission Date: 20080405
  Serious: Yes (Death, Hospitalization, Other)
  Sender: FDA-Public Use
  Company Number: BR-BRISTOL-MYERS SQUIBB COMPANY-13991294

PATIENT
  Age: 2 Year
  Sex: Male
  Weight: 12 kg

DRUGS (1)
  1. QUESTRAN [Suspect]
     Indication: DIARRHOEA
     Dates: start: 20071103

REACTIONS (10)
  - ABDOMINAL DISTENSION [None]
  - ACTIVATED PARTIAL THROMBOPLASTIN TIME PROLONGED [None]
  - BLOOD POTASSIUM DECREASED [None]
  - BLOOD SODIUM DECREASED [None]
  - CARDIAC ARREST [None]
  - HEART RATE INCREASED [None]
  - INTERNATIONAL NORMALISED RATIO INCREASED [None]
  - PCO2 DECREASED [None]
  - SEPSIS [None]
  - SEPTIC SHOCK [None]
